FAERS Safety Report 18601580 (Version 2)
Quarter: 2025Q1

REPORT INFORMATION
  Report Type: Report from Study
  Country: US (occurrence: US)
  Receive Date: 20201210
  Receipt Date: 20250107
  Transmission Date: 20250409
  Serious: Yes (Disabling, Other)
  Sender: TAKEDA
  Company Number: US-TAKEDA-2020TUS056531

PATIENT
  Sex: Female

DRUGS (1)
  1. VEDOLIZUMAB [Suspect]
     Active Substance: VEDOLIZUMAB
     Indication: Product used for unknown indication

REACTIONS (1)
  - Disability [Unknown]
